FAERS Safety Report 9373430 (Version 1)
Quarter: 2013Q2

REPORT INFORMATION
  Report Type: Spontaneous
  Country: US (occurrence: US)
  Receive Date: 20130627
  Receipt Date: 20130627
  Transmission Date: 20140414
  Serious: No
  Sender: FDA-Public Use
  Company Number: US-BAYER-2013-079325

PATIENT
  Age: 74 Year
  Sex: Male
  Weight: 99.77 kg

DRUGS (2)
  1. ALEVE GELCAPS [Suspect]
     Dosage: 2 DF, QD
     Route: 048
     Dates: start: 20130617
  2. BAYER ASPIRIN REGIMEN ADULT LOW STRENGTH [Concomitant]

REACTIONS (2)
  - Abdominal pain upper [Not Recovered/Not Resolved]
  - Diarrhoea [Not Recovered/Not Resolved]
